FAERS Safety Report 7892599-8 (Version None)
Quarter: 2011Q4

REPORT INFORMATION
  Report Type: 
  Country: None (occurrence: None)
  Receive Date: 20111102
  Receipt Date: 20111102
  Transmission Date: 20120403
  Serious: Yes (Hospitalization, Congenital Anomaly, Other)
  Sender: FDA-Public Use
  Company Number: AUR-APL-2011-05635

PATIENT
  Weight: 2.07 kg

DRUGS (4)
  1. FUROSEMIDE [Suspect]
     Indication: PRODUCT USED FOR UNKNOWN INDICATION
     Dosage: 80 MG (40 MG,2 IN 1 D), TRANSPLACENTAL
     Route: 064
  2. PROPRANOLOL [Suspect]
     Indication: PRODUCT USED FOR UNKNOWN INDICATION
     Dosage: 80 MG (40 MG,2 IN 1 D),TRANSPLACENTAL
     Route: 064
  3. MACRODANTIN [Suspect]
     Indication: PYELONEPHRITIS
     Dosage: TRANSPLACENTAL
     Route: 064
  4. CEFTRIAXONE [Suspect]
     Indication: PYELONEPHRITIS
     Dosage: TRANSPLACENTAL
     Route: 064

REACTIONS (6)
  - OLIGOHYDRAMNIOS [None]
  - FOETAL MALPRESENTATION [None]
  - MATERNAL DRUGS AFFECTING FOETUS [None]
  - SMALL FOR DATES BABY [None]
  - CAESAREAN SECTION [None]
  - FOETAL GROWTH RESTRICTION [None]
